FAERS Safety Report 11644071 (Version 1)
Quarter: 2015Q4

REPORT INFORMATION
  Report Type: Spontaneous
  Country: US (occurrence: US)
  Receive Date: 20151020
  Receipt Date: 20151020
  Transmission Date: 20160304
  Serious: Yes (Hospitalization)
  Sender: FDA-Public Use
  Company Number: US-JNJFOC-20151013112

PATIENT
  Age: 92 Year
  Sex: Female
  Weight: 22.23 kg

DRUGS (2)
  1. XARELTO [Suspect]
     Active Substance: RIVAROXABAN
     Indication: ATRIAL FIBRILLATION
     Route: 048
     Dates: start: 201509
  2. XARELTO [Suspect]
     Active Substance: RIVAROXABAN
     Indication: CEREBROVASCULAR ACCIDENT PROPHYLAXIS
     Route: 048
     Dates: start: 201509

REACTIONS (4)
  - Pneumonia [Unknown]
  - Blood urine present [Unknown]
  - International normalised ratio abnormal [Not Recovered/Not Resolved]
  - Blood creatinine increased [Unknown]

NARRATIVE: CASE EVENT DATE: 201510
